FAERS Safety Report 7610566-6 (Version None)
Quarter: 2011Q3

REPORT INFORMATION
  Report Type: 
  Country: None (occurrence: None)
  Receive Date: 20110715
  Receipt Date: 20110706
  Transmission Date: 20111222
  Serious: No
  Sender: FDA-Public Use
  Company Number: US-B.I. PHARMACEUTICALS,INC./RIDGEFIELD-2011-BP-17128BP

PATIENT
  Age: 72 Year
  Sex: Male

DRUGS (14)
  1. HYDROCHLOROTHIAZIDE [Concomitant]
     Dosage: 25 MG
     Route: 048
  2. NIFEDIPINE [Concomitant]
     Indication: HYPERTENSION
     Dosage: 180 MG
     Route: 048
  3. METOPROLOL TARTRATE [Concomitant]
     Indication: HYPERTENSION
     Dosage: 50 MG
     Route: 048
  4. GLIPIZIDE [Concomitant]
     Indication: DIABETES MELLITUS
     Dosage: 10 MG
     Route: 048
  5. PRADAXA [Suspect]
     Indication: ATRIAL FIBRILLATION
     Dosage: 300 MG
     Route: 048
     Dates: start: 20101101
  6. MULTAQ [Concomitant]
     Indication: ATRIAL FIBRILLATION
     Dosage: 800 MG
     Route: 048
     Dates: start: 20100701
  7. TRAMADOL HCL [Concomitant]
     Indication: BACK PAIN
     Route: 048
     Dates: start: 20100101
  8. TRICOR [Concomitant]
     Indication: BLOOD CHOLESTEROL INCREASED
     Dosage: 145 MG
     Route: 048
  9. CLONIDINE [Concomitant]
     Indication: HYPERTENSION
     Dosage: 0.4 MG
     Route: 048
  10. VICODIN [Concomitant]
     Indication: BACK PAIN
     Route: 048
     Dates: start: 20100101
  11. CENTRUM SILVER [Concomitant]
     Route: 048
  12. FLEXERIL [Concomitant]
     Indication: BACK PAIN
     Route: 048
     Dates: start: 20100101
  13. HYDRALAZINE HCL [Concomitant]
     Dosage: 50 MG
     Route: 048
  14. ASPIRIN [Concomitant]
     Indication: ATRIAL FIBRILLATION
     Dosage: 325 MG
     Route: 048

REACTIONS (1)
  - ATRIAL FIBRILLATION [None]
